FAERS Safety Report 17907489 (Version 1)
Quarter: 2020Q2

REPORT INFORMATION
  Report Type: Spontaneous
  Country: US (occurrence: US)
  Receive Date: 20200617
  Receipt Date: 20200617
  Transmission Date: 20200714
  Serious: Yes (Death)
  Sender: FDA-Public Use
  Company Number: None

PATIENT
  Age: 66 Year
  Sex: Female

DRUGS (9)
  1. DELESTROGEN 20MG/ML INJECTION [Concomitant]
  2. TRIUMEQ [Suspect]
     Active Substance: ABACAVIR SULFATE\DOLUTEGRAVIR SODIUM\LAMIVUDINE
     Indication: HIV INFECTION
     Route: 048
  3. FINASTERIDE 5MG [Concomitant]
     Active Substance: FINASTERIDE
  4. OXYCODONE 10MG [Concomitant]
     Active Substance: OXYCODONE
  5. OXYMORPHONE ER 40MG [Concomitant]
     Active Substance: OXYMORPHONE
  6. QUETIAPINE 100MG [Concomitant]
     Active Substance: QUETIAPINE
  7. SPIRONOLACTONE 100MG [Concomitant]
     Active Substance: SPIRONOLACTONE
  8. ZOLPIDEM [Concomitant]
     Active Substance: ZOLPIDEM TARTRATE
  9. ESCITALOPRAM [Concomitant]
     Active Substance: ESCITALOPRAM OXALATE

REACTIONS (1)
  - Death [None]

NARRATIVE: CASE EVENT DATE: 20200617
